FAERS Safety Report 8509122 (Version 2)
Quarter: 2012Q4

REPORT INFORMATION
  Report Type: 
  Country: US (occurrence: US)
  Receive Date: 20120412
  Receipt Date: 20121127
  Transmission Date: 20130627
  Serious: Yes (Other)
  Sender: FDA-Public Use
  Company Number: US-ASTRAZENECA-2011SE18938

PATIENT
  Age: 54 Year
  Sex: Female
  Weight: 54.4 kg

DRUGS (27)
  1. NEXIUM [Suspect]
     Indication: GASTROOESOPHAGEAL REFLUX DISEASE
     Route: 048
  2. NEXIUM [Suspect]
     Indication: GASTROOESOPHAGEAL REFLUX DISEASE
     Route: 048
  3. NEXIUM [Suspect]
     Indication: GASTROOESOPHAGEAL REFLUX DISEASE
     Route: 048
     Dates: start: 1998
  4. NEXIUM [Suspect]
     Indication: GASTROOESOPHAGEAL REFLUX DISEASE
     Route: 048
     Dates: start: 1998
  5. NEXIUM [Suspect]
     Indication: GASTROOESOPHAGEAL REFLUX DISEASE
     Route: 048
  6. NEXIUM [Suspect]
     Indication: GASTROOESOPHAGEAL REFLUX DISEASE
     Route: 048
  7. SEROQUEL [Suspect]
     Indication: BIPOLAR DISORDER
     Route: 048
     Dates: start: 2001, end: 20110128
  8. SEROQUEL [Suspect]
     Indication: BIPOLAR DISORDER
     Route: 048
     Dates: start: 20110405
  9. SEROQUEL [Suspect]
     Indication: BIPOLAR DISORDER
     Route: 048
     Dates: start: 20110405
  10. BUPROPION XL [Concomitant]
  11. BUSPERONE [Concomitant]
     Indication: BIPOLAR DISORDER
  12. CLONAZEPAM [Concomitant]
     Indication: BIPOLAR DISORDER
  13. ESTRADIOL [Concomitant]
  14. FEXOFENADINE [Concomitant]
     Indication: HYPERSENSITIVITY
     Dosage: 64/120 DAILY
  15. HYDROCODONE [Concomitant]
     Indication: ARTHRITIS
     Dosage: 10/500 MG DAILY
  16. LAMOTRIGINE [Concomitant]
     Indication: BIPOLAR DISORDER
  17. POLYETHELENE GLYCOL [Concomitant]
  18. METAXALONE [Concomitant]
     Indication: ARTHRITIS
  19. APAP [Concomitant]
  20. PREDNISONE [Concomitant]
     Indication: ARTHRITIS
  21. PREDNISONE [Concomitant]
     Indication: RHEUMATOID ARTHRITIS
  22. RISPERIDONE [Concomitant]
     Indication: BIPOLAR DISORDER
  23. ROPINIROLE [Concomitant]
  24. LAPINEAL [Concomitant]
     Indication: ARTHRITIS
  25. ALBUTERAL [Concomitant]
     Indication: CHRONIC OBSTRUCTIVE PULMONARY DISEASE
  26. SPIRIVA [Concomitant]
     Indication: CHRONIC OBSTRUCTIVE PULMONARY DISEASE
  27. LAMICTAL [Concomitant]

REACTIONS (18)
  - Concussion [Unknown]
  - Weight decreased [Unknown]
  - Dyspnoea [Unknown]
  - Fall [Unknown]
  - Dehydration [Unknown]
  - Cough [Unknown]
  - Head injury [Unknown]
  - Memory impairment [Unknown]
  - Dysphagia [Unknown]
  - Rheumatoid arthritis [Unknown]
  - Gastrooesophageal reflux disease [Unknown]
  - Throat irritation [Unknown]
  - Pulmonary function test abnormal [Unknown]
  - Stress [Unknown]
  - Insomnia [Not Recovered/Not Resolved]
  - Vomiting [Recovered/Resolved]
  - Incorrect dose administered [Unknown]
  - Drug dose omission [Unknown]
